FAERS Safety Report 5031100-3 (Version None)
Quarter: 2006Q2

REPORT INFORMATION
  Report Type: 
  Country: None (occurrence: None)
  Receive Date: 20060615
  Receipt Date: 20060605
  Transmission Date: 20061013
  Serious: Yes (Hospitalization)
  Sender: FDA-Public Use
  Company Number: 2006-BP-06504RO

PATIENT
  Age: 10 Year
  Sex: Male

DRUGS (2)
  1. DICLOFENAC (DICLOFENAC) [Suspect]
     Indication: BACK PAIN
     Dosage: 12.5 MG/DAY
  2. MEFENAMIC ACID [Suspect]
     Indication: BACK PAIN
     Dosage: 260 MG/DAY

REACTIONS (9)
  - ABDOMINAL DISCOMFORT [None]
  - BACK PAIN [None]
  - BRAIN OEDEMA [None]
  - HYPERTENSIVE ENCEPHALOPATHY [None]
  - OEDEMA [None]
  - RENAL FAILURE ACUTE [None]
  - RESTLESSNESS [None]
  - REVERSIBLE POSTERIOR LEUKOENCEPHALOPATHY SYNDROME [None]
  - TUBULOINTERSTITIAL NEPHRITIS [None]
